FAERS Safety Report 5849512-4 (Version None)
Quarter: 2008Q3

REPORT INFORMATION
  Report Type: 
  Country: None (occurrence: None)
  Receive Date: 20080815
  Receipt Date: 20080730
  Transmission Date: 20090109
  Serious: Yes (Other)
  Sender: FDA-Public Use
  Company Number: STI-2008-02509

PATIENT
  Sex: Male

DRUGS (1)
  1. DUAC [Suspect]
     Indication: ACNE
     Dosage: (4X DAILY (4X RECOMMENDED DOSE), TOPICAL
     Route: 061

REACTIONS (3)
  - DRUG ADMINISTRATION ERROR [None]
  - HEPATITIS [None]
  - INCORRECT DOSE ADMINISTERED [None]
